FAERS Safety Report 15038108 (Version 1)
Quarter: 2018Q2

REPORT INFORMATION
  Report Type: Spontaneous
  Country: GB (occurrence: GB)
  Receive Date: 20180620
  Receipt Date: 20180620
  Transmission Date: 20180711
  Serious: Yes (Hospitalization)
  Sender: FDA-Public Use
  Company Number: GB-TEVA-2018-GB-910240

PATIENT
  Age: 31 Year
  Sex: Female
  Weight: 125.18 kg

DRUGS (1)
  1. GABAPENTIN. [Suspect]
     Active Substance: GABAPENTIN
     Indication: MUSCLE SPASMS
     Dosage: 900 MILLIGRAM DAILY;
     Route: 048
     Dates: start: 20171201, end: 20180425

REACTIONS (3)
  - Pain [Unknown]
  - Abdominal pain upper [Not Recovered/Not Resolved]
  - Cholecystitis [Not Recovered/Not Resolved]

NARRATIVE: CASE EVENT DATE: 20180408
